FAERS Safety Report 6265832-6 (Version None)
Quarter: 2009Q3

REPORT INFORMATION
  Report Type: 
  Country: None (occurrence: None)
  Receive Date: 20090713
  Receipt Date: 20090701
  Transmission Date: 20100115
  Serious: Yes (Other)
  Sender: FDA-Public Use
  Company Number: B0581640A

PATIENT
  Sex: Female
  Weight: 79 kg

DRUGS (5)
  1. LAPATINIB [Suspect]
     Dosage: 1250MG PER DAY
     Route: 048
     Dates: start: 20090408
  2. VINORELBINE [Suspect]
     Dosage: 41.6MG PER DAY
     Route: 042
     Dates: start: 20090415, end: 20090422
  3. ZOLPIDEM [Concomitant]
     Indication: ANXIETY
     Route: 048
  4. SPASFON [Concomitant]
     Indication: PAIN
     Route: 048
  5. DOLIPRANE [Concomitant]
     Indication: PAIN
     Route: 048

REACTIONS (1)
  - NEUTROPENIA [None]
